FAERS Safety Report 7523818-5 (Version None)
Quarter: 2011Q2

REPORT INFORMATION
  Report Type: 
  Country: None (occurrence: None)
  Receive Date: 20110603
  Receipt Date: 20110519
  Transmission Date: 20111010
  Serious: Yes (Death, Other)
  Sender: FDA-Public Use
  Company Number: JP-WATSON-2011-07566

PATIENT
  Age: 64 Year
  Sex: Male

DRUGS (3)
  1. TICLOPIDINE HCL [Suspect]
     Indication: ANTIPLATELET THERAPY
     Dosage: 200 MG, DAILY
     Route: 048
  2. HEPARIN SODIUM [Suspect]
     Indication: ANTICOAGULANT THERAPY
  3. ASPIRIN [Suspect]
     Indication: ANTIPLATELET THERAPY

REACTIONS (1)
  - PULMONARY HAEMORRHAGE [None]
